FAERS Safety Report 5072972-6 (Version None)
Quarter: 2006Q3

REPORT INFORMATION
  Report Type: 
  Country: None (occurrence: None)
  Receive Date: 20060802
  Receipt Date: 20060717
  Transmission Date: 20061208
  Serious: Yes (Hospitalization)
  Sender: FDA-Public Use
  Company Number: IL-2006-013086

PATIENT
  Age: 48 Year
  Sex: Female
  Weight: 61 kg

DRUGS (7)
  1. BETASERON [Suspect]
     Indication: RELAPSING-REMITTING MULTIPLE SCLEROSIS
     Dosage: 8 OR 16 MUI, EVERY 2D, SUBCUTANEOUS
     Route: 058
     Dates: start: 20050308, end: 20060630
  2. OMEGA 3 (FISH OIL) [Concomitant]
  3. THYROXIN (LEVOTHYROXINE SODIUM) [Concomitant]
  4. TRAMADOL HCL [Concomitant]
  5. BACLOFEN [Concomitant]
  6. FOLIC ACID [Concomitant]
  7. COPAXONE [Suspect]

REACTIONS (8)
  - BILIARY COLIC [None]
  - CHOLECYSTITIS ACUTE [None]
  - CHOLELITHIASIS [None]
  - CYSTITIS [None]
  - HEADACHE [None]
  - HEPATIC ENZYME INCREASED [None]
  - JAUNDICE CHOLESTATIC [None]
  - MUSCULOSKELETAL CHEST PAIN [None]
